FAERS Safety Report 7683555-3 (Version None)
Quarter: 2011Q3

REPORT INFORMATION
  Report Type: 
  Country: None (occurrence: None)
  Receive Date: 20110815
  Receipt Date: 20110805
  Transmission Date: 20111222
  Serious: Yes (Death)
  Sender: FDA-Public Use
  Company Number: BE-CELGENEUS-013-50794-11080749

PATIENT
  Sex: Male

DRUGS (32)
  1. VIDAZA [Suspect]
     Dosage: 138 MILLIGRAM
     Route: 065
     Dates: start: 20110726, end: 20110801
  2. FOLIC ACID [Concomitant]
     Route: 065
     Dates: start: 20110124
  3. BETAMETHASONE [Concomitant]
     Route: 065
     Dates: start: 20110524
  4. PLATELETS [Concomitant]
     Route: 065
     Dates: start: 20110726, end: 20110726
  5. RED BLOOD CELLS [Concomitant]
     Route: 065
     Dates: start: 20110726, end: 20110726
  6. AMOXICILLIN [Concomitant]
     Route: 065
     Dates: start: 20110415
  7. CIPROFLOXACIN HCL [Concomitant]
     Route: 065
     Dates: start: 20110520
  8. PLATELETS [Concomitant]
     Route: 065
     Dates: start: 20110703, end: 20110704
  9. PLATELETS [Concomitant]
     Route: 065
     Dates: start: 20110718, end: 20110718
  10. PIPERACILLIN AND TAZOBACTAM [Concomitant]
     Route: 065
     Dates: start: 20110616, end: 20110709
  11. METHYLPREDNISOLONE [Concomitant]
     Route: 065
     Dates: start: 20110711, end: 20110714
  12. CEFEPIME [Concomitant]
     Route: 065
     Dates: start: 20110422, end: 20110505
  13. MAALOX [Concomitant]
     Route: 065
     Dates: start: 20110411
  14. PLATELETS [Concomitant]
     Route: 065
     Dates: start: 20110706, end: 20110706
  15. PLATELETS [Concomitant]
     Route: 065
     Dates: start: 20110713, end: 20110713
  16. MEROPENEM [Concomitant]
     Route: 065
     Dates: start: 20110709, end: 20110713
  17. ACETAMINOPHEN [Concomitant]
     Route: 065
     Dates: start: 20110705, end: 20110711
  18. RED BLOOD CELLS [Concomitant]
     Route: 065
     Dates: start: 20110415, end: 20110707
  19. CIPROFLOXACIN [Concomitant]
     Route: 065
     Dates: start: 20110415
  20. CIPROFLOXACIN [Concomitant]
     Route: 065
     Dates: start: 20110505, end: 20110516
  21. ACYCLOVIR [Concomitant]
     Route: 065
     Dates: start: 20110130
  22. PLATELETS [Concomitant]
     Route: 065
     Dates: start: 20110701, end: 20110701
  23. FLUCONAZOLE [Concomitant]
     Route: 065
     Dates: start: 20110524
  24. PLATELETS [Concomitant]
     Route: 065
     Dates: start: 20110709, end: 20110709
  25. NOVABAN [Concomitant]
     Route: 065
     Dates: start: 20110705, end: 20110706
  26. ESOMEPRAZOLE MAGNESIUM [Concomitant]
     Route: 065
     Dates: start: 20110505
  27. CIPROFLOXACIN [Concomitant]
     Route: 065
     Dates: start: 20110520
  28. RANITIDINE [Concomitant]
     Route: 065
     Dates: start: 20110227
  29. ESOMEPRAZOLE MAGNESIUM [Concomitant]
     Route: 065
     Dates: start: 20110411, end: 20110505
  30. SYNGEL [Concomitant]
     Route: 065
     Dates: start: 20110419
  31. PLATELETS [Concomitant]
     Route: 065
     Dates: start: 20110415, end: 20110626
  32. PLATELETS [Concomitant]
     Route: 065
     Dates: start: 20110722, end: 20110722

REACTIONS (1)
  - ENTEROCOLITIS INFECTIOUS [None]
